FAERS Safety Report 20481742 (Version 1)
Quarter: 2022Q1

REPORT INFORMATION
  Report Type: Spontaneous
  Country: US (occurrence: US)
  Receive Date: 20220216
  Receipt Date: 20220216
  Transmission Date: 20220423
  Serious: Yes (Other)
  Sender: FDA-Public Use
  Company Number: US-TAKEDA-2022TUS010357

PATIENT
  Age: 47 Year
  Sex: Male
  Weight: 88 kg

DRUGS (4)
  1. ULORIC [Suspect]
     Active Substance: FEBUXOSTAT
     Indication: Gout
     Dosage: 80 MILLIGRAM, QD
     Route: 065
  2. ULORIC [Suspect]
     Active Substance: FEBUXOSTAT
     Indication: Hyperuricaemia
  3. LIPITOR [Concomitant]
     Active Substance: ATORVASTATIN CALCIUM
     Indication: Cardiac operation
     Dosage: 40 MILLIGRAM, QD
     Route: 065
  4. COREG [Concomitant]
     Active Substance: CARVEDILOL
     Indication: Cardiac operation
     Dosage: 3.135 MILLIGRAM, BID
     Route: 065

REACTIONS (2)
  - Cardiac failure congestive [Unknown]
  - Coronary artery bypass [Unknown]

NARRATIVE: CASE EVENT DATE: 20211205
